FAERS Safety Report 15642757 (Version 6)
Quarter: 2020Q1

REPORT INFORMATION
  Report Type: Report from Study
  Country: GB (occurrence: GB)
  Receive Date: 20181121
  Receipt Date: 20200129
  Transmission Date: 20200409
  Serious: Yes (Hospitalization, Other)
  Sender: FDA-Public Use
  Company Number: GB-ROCHE-2218364

PATIENT
  Sex: Female

DRUGS (1)
  1. ROACTEMRA [Suspect]
     Active Substance: TOCILIZUMAB
     Indication: RHEUMATOID ARTHRITIS
     Route: 058
     Dates: start: 20170714

REACTIONS (8)
  - Foot deformity [Unknown]
  - Skin laceration [Unknown]
  - Wound sepsis [Unknown]
  - Localised infection [Unknown]
  - Myocardial infarction [Unknown]
  - Wound [Unknown]
  - Condition aggravated [Unknown]
  - Impaired healing [Unknown]
